FAERS Safety Report 24966173 (Version 2)
Quarter: 2025Q1

REPORT INFORMATION
  Report Type: Spontaneous
  Country: GB (occurrence: GB)
  Receive Date: 20250213
  Receipt Date: 20250224
  Transmission Date: 20250409
  Serious: Yes (Other)
  Sender: SANDOZ
  Company Number: GB-SANDOZ-SDZ2025GB008988

PATIENT
  Age: 93 Year
  Sex: Female

DRUGS (3)
  1. CLARITHROMYCIN [Suspect]
     Active Substance: CLARITHROMYCIN
     Indication: Pseudomonas infection
     Dosage: 2 DF, QD FOR 5 DAYS (PL 04416/0642)
     Route: 065
     Dates: start: 20250127, end: 202501
  2. CLARITHROMYCIN [Suspect]
     Active Substance: CLARITHROMYCIN
     Indication: Haemophilus infection
     Route: 065
     Dates: start: 20250127
  3. CLARITHROMYCIN [Suspect]
     Active Substance: CLARITHROMYCIN
     Indication: Mycobacterial infection

REACTIONS (3)
  - Blindness [Not Recovered/Not Resolved]
  - Vision blurred [Unknown]
  - Loss of personal independence in daily activities [Unknown]

NARRATIVE: CASE EVENT DATE: 20250101
